FAERS Safety Report 6467468-0 (Version None)
Quarter: 2009Q4

REPORT INFORMATION
  Report Type: 
  Country: None (occurrence: None)
  Receive Date: 20091202
  Receipt Date: 20091119
  Transmission Date: 20100525
  Serious: Yes (Hospitalization)
  Sender: FDA-Public Use
  Company Number: BE-JNJFOC-20091105518

PATIENT
  Age: 37 Year
  Sex: Female
  Weight: 60 kg

DRUGS (8)
  1. INVEGA [Suspect]
     Route: 048
  2. INVEGA [Suspect]
     Indication: SCHIZOPHRENIA
     Route: 048
  3. BEFACT [Concomitant]
     Indication: WERNICKE'S ENCEPHALOPATHY
     Route: 048
  4. INDERAL RETARD [Concomitant]
     Indication: TREMOR
     Route: 048
  5. REMERGON [Concomitant]
     Indication: MOOD SWINGS
     Route: 048
  6. MYSOLINE [Concomitant]
     Indication: TREMOR
     Route: 048
  7. EFFEXOR [Concomitant]
     Indication: MOOD SWINGS
     Route: 048
  8. LAMOTRIGINE [Concomitant]
     Indication: MOOD SWINGS
     Route: 048

REACTIONS (3)
  - AMENORRHOEA [None]
  - HIRSUTISM [None]
  - HYPERPROLACTINAEMIA [None]
